FAERS Safety Report 25323162 (Version 1)
Quarter: 2025Q2

REPORT INFORMATION
  Report Type: Other
  Country: US (occurrence: US)
  Receive Date: 20250516
  Receipt Date: 20250516
  Transmission Date: 20250717
  Serious: Yes (Hospitalization, Other)
  Sender: PL DEVELOPMENTS
  Company Number: US-P+L Developments of Newyork Corporation-2176834

PATIENT
  Age: 29 Year
  Sex: Male

DRUGS (2)
  1. NAPROXEN SODIUM [Suspect]
     Active Substance: NAPROXEN SODIUM
     Indication: Toothache
  2. LYSERGIDE [Concomitant]
     Active Substance: LYSERGIDE

REACTIONS (4)
  - Peptic ulcer perforation [Unknown]
  - Peritonitis [Unknown]
  - Renal failure [Unknown]
  - Peptic ulcer haemorrhage [Unknown]
